FAERS Safety Report 4660630-9 (Version None)
Quarter: 2005Q2

REPORT INFORMATION
  Report Type: 
  Country: None (occurrence: None)
  Receive Date: 20050512
  Receipt Date: 20050509
  Transmission Date: 20051028
  Serious: Yes (Death, Disabling)
  Sender: FDA-Public Use
  Company Number: PHBS2005ES06487

PATIENT
  Age: 73 Year
  Sex: Male

DRUGS (10)
  1. ZOMETA [Suspect]
     Indication: MULTIPLE MYELOMA
     Dosage: 4 MG, QMO
     Route: 042
     Dates: start: 20030225, end: 20050208
  2. AREDIA [Suspect]
     Indication: MULTIPLE MYELOMA
     Dosage: 90 MG, QMO
     Route: 042
     Dates: start: 20010101, end: 20030101
  3. MELPHALAN [Concomitant]
     Route: 065
     Dates: start: 20010101
  4. PREDNISONE [Concomitant]
     Route: 065
     Dates: start: 20010101
  5. GENOXAL [Concomitant]
     Route: 065
     Dates: start: 20020701
  6. DEXAMETHASONE [Concomitant]
     Route: 065
     Dates: start: 20040901
  7. CALCIUM SANDOZ FORTE D [Concomitant]
     Route: 065
  8. COTRIM [Concomitant]
     Route: 065
  9. ALLOPURINOL [Concomitant]
     Route: 065
  10. EPOGEN [Concomitant]
     Route: 065

REACTIONS (4)
  - ASEPTIC NECROSIS BONE [None]
  - MALIGNANT NEOPLASM PROGRESSION [None]
  - MULTIPLE MYELOMA [None]
  - RENAL FAILURE ACUTE [None]
